FAERS Safety Report 9884544 (Version 1)
Quarter: 2014Q1

REPORT INFORMATION
  Report Type: Spontaneous
  Country: US (occurrence: US)
  Receive Date: 20140210
  Receipt Date: 20140210
  Transmission Date: 20141002
  Serious: Yes (Other)
  Sender: FDA-Public Use
  Company Number: US-ALLERGAN-1319380US

PATIENT
  Age: 58 Year
  Sex: Female

DRUGS (3)
  1. BOTOX COSMETIC [Suspect]
     Indication: SKIN WRINKLING
     Dosage: 20 UNITS, SINGLE
     Route: 030
     Dates: start: 20131203, end: 20131203
  2. JUVEDERM ULTRA PLUS XC [Suspect]
     Indication: SKIN WRINKLING
     Dosage: UNK, SINGLE
     Dates: start: 20131203, end: 20131203
  3. JUVEDERM ULTRA PLUS XC [Suspect]
     Indication: SKIN WRINKLING

REACTIONS (7)
  - Dyspnoea [Recovered/Resolved]
  - Erythema [Recovering/Resolving]
  - Burning sensation [Not Recovered/Not Resolved]
  - Swelling face [Unknown]
  - Pruritus [Unknown]
  - Rash [Unknown]
  - Hypersensitivity [Unknown]
